FAERS Safety Report 15892542 (Version 1)
Quarter: 2019Q1

REPORT INFORMATION
  Report Type: Report from Study
  Country: US (occurrence: US)
  Receive Date: 20190130
  Receipt Date: 20190130
  Transmission Date: 20190417
  Serious: No
  Sender: FDA-Public Use
  Company Number: US-EXELIXIS-CABO-18014312

PATIENT
  Age: 63 Year
  Sex: Female

DRUGS (1)
  1. CABOMETYX [Suspect]
     Active Substance: CABOZANTINIB S-MALATE
     Indication: RENAL CANCER
     Dosage: 40 MG, QD
     Dates: start: 20180417

REACTIONS (8)
  - Gingival pain [Unknown]
  - Dysgeusia [Unknown]
  - Nausea [Recovered/Resolved]
  - Fatigue [Unknown]
  - Dry mouth [Unknown]
  - Leukoplakia oral [Unknown]
  - Joint swelling [Recovered/Resolved]
  - Decreased appetite [Unknown]

NARRATIVE: CASE EVENT DATE: 201804
